FAERS Safety Report 18052533 (Version 4)
Quarter: 2021Q3

REPORT INFORMATION
  Report Type: Report from Study
  Country: CO (occurrence: CO)
  Receive Date: 20200721
  Receipt Date: 20210827
  Transmission Date: 20211014
  Serious: Yes (Life-Threatening, Hospitalization, Other)
  Sender: FDA-Public Use
  Company Number: NVSC2020CO056858

PATIENT
  Age: 60 Year
  Sex: Male

DRUGS (7)
  1. REVOLADE [Suspect]
     Active Substance: ELTROMBOPAG OLAMINE
     Indication: THROMBOCYTOPENIA
     Dosage: UNK
     Route: 048
     Dates: start: 2014
  2. REVOLADE [Suspect]
     Active Substance: ELTROMBOPAG OLAMINE
     Dosage: 25 MG, QOD (1 TABLET OF 25 MG EVERY OTHER DAY)
     Route: 048
  3. REVOLADE [Suspect]
     Active Substance: ELTROMBOPAG OLAMINE
     Dosage: 25 MG, QD (1 TABLET OF 25 MG)
     Route: 048
  4. REVOLADE [Suspect]
     Active Substance: ELTROMBOPAG OLAMINE
     Dosage: 50 MG, QD (2 TABLETS OF 25 MG) (8 YEARS AGO)
     Route: 048
  5. REVOLADE [Suspect]
     Active Substance: ELTROMBOPAG OLAMINE
     Dosage: UNK (1 OF 25 MG)
     Route: 048
  6. REVOLADE [Suspect]
     Active Substance: ELTROMBOPAG OLAMINE
     Dosage: UNK (2 OF 25MG/50MG)
     Route: 048
  7. GALVUSMET [Suspect]
     Active Substance: METFORMIN HYDROCHLORIDE\VILDAGLIPTIN
     Indication: DIABETES MELLITUS
     Dosage: UNK
     Route: 065

REACTIONS (8)
  - Product prescribing error [Unknown]
  - Bacterial infection [Unknown]
  - Pyrexia [Unknown]
  - Incorrect dose administered [Unknown]
  - Platelet count decreased [Unknown]
  - COVID-19 [Unknown]
  - Platelet count increased [Unknown]
  - Staphylococcal infection [Unknown]

NARRATIVE: CASE EVENT DATE: 202002
